FAERS Safety Report 22329027 (Version 1)
Quarter: 2023Q2

REPORT INFORMATION
  Report Type: Spontaneous
  Country: RU (occurrence: RU)
  Receive Date: 20230517
  Receipt Date: 20230517
  Transmission Date: 20230721
  Serious: Yes (Life-Threatening, Hospitalization)
  Sender: FDA-Public Use
  Company Number: RU-AstraZeneca-2023A108312

PATIENT
  Age: 83 Year
  Sex: Female
  Weight: 86 kg

DRUGS (2)
  1. METOPROLOL SUCCINATE [Suspect]
     Active Substance: METOPROLOL SUCCINATE
     Indication: Heart rate abnormal
     Route: 048
  2. LOZAP [Concomitant]
     Indication: Product used for unknown indication

REACTIONS (2)
  - Hypertensive crisis [Unknown]
  - Off label use [Unknown]
